FAERS Safety Report 7887695-5 (Version None)
Quarter: 2011Q4

REPORT INFORMATION
  Report Type: 
  Country: None (occurrence: None)
  Receive Date: 20111103
  Receipt Date: 20111025
  Transmission Date: 20120403
  Serious: No
  Sender: FDA-Public Use
  Company Number: US-BIOGENIDEC-2011BI040782

PATIENT
  Sex: Female

DRUGS (3)
  1. AVONEX [Suspect]
     Indication: MULTIPLE SCLEROSIS
     Route: 030
     Dates: start: 20080901
  2. NAPROXEN [Concomitant]
     Indication: PREMEDICATION
     Dates: start: 20100101
  3. ALLERGY MEDICINE OTC (NOS) [Concomitant]
     Indication: PREMEDICATION
     Dates: start: 20100101

REACTIONS (5)
  - INFLUENZA LIKE ILLNESS [None]
  - FEELING HOT [None]
  - LOCAL SWELLING [None]
  - SENSORY DISTURBANCE [None]
  - FEELING COLD [None]
